FAERS Safety Report 9395437 (Version 1)
Quarter: 2013Q3

REPORT INFORMATION
  Report Type: Spontaneous
  Country: US (occurrence: US)
  Receive Date: 20130711
  Receipt Date: 20130711
  Transmission Date: 20140515
  Serious: No
  Sender: FDA-Public Use
  Company Number: US-ASTELLAS-2013US005109

PATIENT
  Sex: Male

DRUGS (4)
  1. MYRBETRIQ [Suspect]
     Indication: POLLAKIURIA
     Dosage: UNK
     Route: 048
  2. MYRBETRIQ [Suspect]
     Indication: MICTURITION URGENCY
  3. MYRBETRIQ [Suspect]
     Indication: INCONTINENCE
  4. MYRBETRIQ [Suspect]
     Indication: NOCTURIA

REACTIONS (2)
  - Off label use [Unknown]
  - Dizziness [Unknown]
